FAERS Safety Report 18007660 (Version 1)
Quarter: 2020Q3

REPORT INFORMATION
  Report Type: Other
  Country: CA (occurrence: CA)
  Receive Date: 20200710
  Receipt Date: 20200710
  Transmission Date: 20201103
  Serious: Yes (Other)
  Sender: FDA-Public Use
  Company Number: CA-APOTEX-2020AP012873

PATIENT
  Age: 24 Year
  Sex: Male
  Weight: 61.69 kg

DRUGS (1)
  1. APO?ARIPIPRAZOLE [Suspect]
     Active Substance: ARIPIPRAZOLE
     Indication: SCHIZOPHRENIA
     Dosage: 4 MILLIGRAM, QD
     Route: 065

REACTIONS (4)
  - Product substitution issue [Recovered/Resolved]
  - Ill-defined disorder [Recovered/Resolved]
  - Therapeutic response decreased [Recovered/Resolved]
  - Vomiting [Recovered/Resolved]
